FAERS Safety Report 10836045 (Version 1)
Quarter: 2015Q1

REPORT INFORMATION
  Report Type: Report from Study
  Country: DE (occurrence: ES)
  Receive Date: 20150219
  Receipt Date: 20150219
  Transmission Date: 20150721
  Serious: Yes (Other)
  Sender: FDA-Public Use
  Company Number: DE-ACTELION-A-NJ2015-113241

PATIENT
  Age: 79 Year
  Sex: Female

DRUGS (6)
  1. ADIRO [Concomitant]
     Active Substance: ASPIRIN
  2. HEMOVAS [Concomitant]
  3. MASDIL [Concomitant]
     Active Substance: DILTIAZEM HYDROCHLORIDE
  4. FUROSEMIDA [Concomitant]
     Active Substance: FUROSEMIDE
  5. VENTAVIS [Suspect]
     Active Substance: ILOPROST
     Indication: PULMONARY HYPERTENSION
     Dosage: 5 UNK, UNK
     Route: 055
     Dates: start: 20141109, end: 20141117
  6. GLUCOSAMINA [Concomitant]

REACTIONS (3)
  - Face oedema [Recovered/Resolved]
  - Eyelid oedema [Recovered/Resolved]
  - Toxic skin eruption [Recovered/Resolved]

NARRATIVE: CASE EVENT DATE: 20141115
